FAERS Safety Report 9506027 (Version 1)
Quarter: 2013Q1

REPORT INFORMATION
  Report Type: Spontaneous
  Country: US (occurrence: None)
  Receive Date: 20130305
  Receipt Date: 20130305
  Transmission Date: 20140127
  Serious: Yes (Other)
  Sender: FDA-Public Use
  Company Number: 163-21880-12050291

PATIENT
  Age: 46 Year
  Sex: Female
  Weight: 136.08 kg

DRUGS (4)
  1. REVLIMID (LENALIDOMIDE) [Suspect]
     Route: 048
     Dates: start: 20111020
  2. HYDROCODONE/APAP (VICODIN) [Concomitant]
  3. OMNICEF  (CEFDINIR) [Concomitant]
  4. PAIN MEDICATION (ANALGESICS) [Concomitant]

REACTIONS (3)
  - Hypersensitivity [None]
  - Sinusitis [None]
  - Abdominal pain upper [None]
